FAERS Safety Report 13419472 (Version 1)
Quarter: 2017Q2

REPORT INFORMATION
  Report Type: Other
  Country: GB (occurrence: FR)
  Receive Date: 20170407
  Receipt Date: 20170407
  Transmission Date: 20170830
  Serious: Yes (Hospitalization, Other)
  Sender: FDA-Public Use
  Company Number: FR-CLARIS PHARMASERVICES-1065128

PATIENT
  Age: 51 Year
  Sex: Male
  Weight: 89 kg

DRUGS (6)
  1. FLUCONAZOLE. [Suspect]
     Active Substance: FLUCONAZOLE
     Route: 042
     Dates: start: 20160422, end: 20160423
  2. DIAZEPAM. [Suspect]
     Active Substance: DIAZEPAM
     Route: 048
  3. FLUCONAZOLE. [Suspect]
     Active Substance: FLUCONAZOLE
     Indication: URINARY TRACT INFECTION
     Route: 042
     Dates: start: 20160422, end: 20160423
  4. PREGABALIN. [Suspect]
     Active Substance: PREGABALIN
     Route: 048
  5. OXYCODONE SLOW RELEASE [Suspect]
     Active Substance: OXYCODONE
     Route: 048
     Dates: start: 20160412
  6. OXYCODONE IMMEDIATE RELEASE [Suspect]
     Active Substance: OXYCODONE
     Route: 048
     Dates: start: 20160412

REACTIONS (3)
  - Drug interaction [Unknown]
  - Bradypnoea [Unknown]
  - Respiratory depression [Unknown]
